FAERS Safety Report 5792150-2 (Version None)
Quarter: 2008Q2

REPORT INFORMATION
  Report Type: 
  Country: None (occurrence: None)
  Receive Date: 20080625
  Receipt Date: 20080317
  Transmission Date: 20081010
  Serious: No
  Sender: FDA-Public Use
  Company Number: US-WYE-H03178208

PATIENT
  Age: 76 Year
  Sex: Male
  Weight: 72.64 kg

DRUGS (1)
  1. TORISEL [Suspect]
     Indication: LUNG CANCER METASTATIC
     Dosage: 25 MG 1X PER 1 WK, INTRAVENOUS
     Route: 042

REACTIONS (5)
  - ANOREXIA [None]
  - COUGH [None]
  - MUCOSAL INFLAMMATION [None]
  - RHINORRHOEA [None]
  - WEIGHT DECREASED [None]
